FAERS Safety Report 14991049 (Version 1)
Quarter: 2018Q2

REPORT INFORMATION
  Report Type: Spontaneous
  Country: GB (occurrence: GB)
  Receive Date: 20180608
  Receipt Date: 20180608
  Transmission Date: 20180711
  Serious: Yes (Hospitalization)
  Sender: FDA-Public Use
  Company Number: GB-TEVA-2018-GB-903071

PATIENT
  Age: 84 Year
  Sex: Male

DRUGS (2)
  1. CONTRAST MEDIA [Suspect]
     Active Substance: UNSPECIFIED INGREDIENT
     Indication: COMPUTERISED TOMOGRAM
     Route: 065
     Dates: start: 20171216, end: 20171216
  2. METFORMIN [Suspect]
     Active Substance: METFORMIN HYDROCHLORIDE
     Dosage: 2 GRAM DAILY;
     Route: 065

REACTIONS (5)
  - Nephropathy toxic [Unknown]
  - Hyperlactacidaemia [Unknown]
  - Labelled drug-drug interaction medication error [Unknown]
  - Metabolic acidosis [Unknown]
  - Hyperkalaemia [Unknown]
